FAERS Safety Report 4479373-X (Version None)
Quarter: 2004Q4

REPORT INFORMATION
  Report Type: 
  Country: None (occurrence: None)
  Receive Date: 20041020
  Receipt Date: 20041012
  Transmission Date: 20050328
  Serious: Yes (Death, Other)
  Sender: FDA-Public Use
  Company Number: PHBS2004JP13537

PATIENT
  Age: 83 Year
  Sex: Female
  Weight: 45 kg

DRUGS (6)
  1. AREDIA [Suspect]
     Indication: METASTASES TO BONE
     Dosage: 30 MG, ONCE/SINGLE
     Route: 042
     Dates: start: 20041005, end: 20041005
  2. LOXONIN [Concomitant]
     Route: 065
  3. MARZULENE [Concomitant]
     Route: 065
  4. EURODIN [Concomitant]
     Route: 065
  5. BLOPRESS [Concomitant]
     Route: 065
  6. PURSENNID [Concomitant]
     Route: 065

REACTIONS (9)
  - CARDIAC ARREST [None]
  - CARDIAC FAILURE CONGESTIVE [None]
  - DYSPNOEA [None]
  - INTERSTITIAL LUNG DISEASE [None]
  - LIVER DISORDER [None]
  - PLEURAL EFFUSION [None]
  - RESPIRATORY ARREST [None]
  - RESUSCITATION [None]
  - STRIDOR [None]
